FAERS Safety Report 9559358 (Version 1)
Quarter: 2013Q3

REPORT INFORMATION
  Report Type: Spontaneous
  Country: US (occurrence: None)
  Receive Date: 20130925
  Receipt Date: 20130925
  Transmission Date: 20140515
  Serious: Yes (Other)
  Sender: FDA-Public Use
  Company Number: 2013-US-000987

PATIENT
  Age: 32 Year
  Sex: Female

DRUGS (2)
  1. XYREM [Suspect]
     Indication: NARCOLEPSY
     Dates: start: 20120604, end: 2012
  2. XYREM [Suspect]
     Indication: CATAPLEXY
     Dates: start: 20120604, end: 2012

REACTIONS (4)
  - Hip surgery [None]
  - Vomiting [None]
  - Nausea [None]
  - Intentional drug misuse [None]
